FAERS Safety Report 9322656 (Version 1)
Quarter: 2013Q2

REPORT INFORMATION
  Report Type: Spontaneous
  Country: US (occurrence: US)
  Receive Date: 20130531
  Receipt Date: 20130531
  Transmission Date: 20140414
  Serious: No
  Sender: FDA-Public Use
  Company Number: US-TEVA-407431USA

PATIENT
  Age: 76 Year
  Sex: Male
  Weight: 64.92 kg

DRUGS (9)
  1. TREANDA [Suspect]
     Indication: NON-HODGKIN^S LYMPHOMA
     Dates: start: 20130507, end: 20130508
  2. TREANDA [Suspect]
     Dates: start: 20130514
  3. WARFARIN [Concomitant]
     Indication: ATRIAL FIBRILLATION
     Dosage: 2 MILLIGRAM DAILY;
     Route: 048
  4. WARFARIN [Concomitant]
     Dosage: 2.5 MILLIGRAM DAILY;
     Route: 048
  5. FLOMAX [Concomitant]
     Indication: BENIGN PROSTATIC HYPERPLASIA
     Dosage: .4 MILLIGRAM DAILY;
     Route: 048
  6. METOPROLOL [Concomitant]
     Dosage: 50 MILLIGRAM DAILY; 1/2 TABLET BID
     Route: 048
  7. FINASTERIDE [Concomitant]
     Indication: BENIGN PROSTATIC HYPERPLASIA
     Route: 048
  8. DIGOXIN [Concomitant]
     Indication: HEART RATE
     Dosage: 125 MICROGRAM DAILY;
     Route: 048
  9. HCTZ [Concomitant]
     Dosage: 12.5 MILLIGRAM DAILY;
     Route: 048

REACTIONS (9)
  - Lymphadenopathy [Not Recovered/Not Resolved]
  - Myalgia [Recovered/Resolved]
  - Throat irritation [Recovered/Resolved]
  - Dysuria [Not Recovered/Not Resolved]
  - Pain [Recovered/Resolved]
  - Pain in extremity [Recovered/Resolved]
  - Malaise [Recovered/Resolved]
  - Dyspnoea [Recovered/Resolved]
  - Cough [Recovered/Resolved]
